FAERS Safety Report 22144157 (Version 1)
Quarter: 2023Q1

REPORT INFORMATION
  Report Type: Report from Study
  Country: US (occurrence: US)
  Receive Date: 20230327
  Receipt Date: 20230327
  Transmission Date: 20230417
  Serious: Yes (Other)
  Sender: FDA-Public Use
  Company Number: US-ABBVIE-4703610

PATIENT
  Age: 76 Year
  Sex: Male

DRUGS (1)
  1. CREON [Suspect]
     Active Substance: PANCRELIPASE AMYLASE\PANCRELIPASE LIPASE\PANCRELIPASE PROTEASE
     Indication: Pancreatic failure
     Route: 048
     Dates: start: 20230317

REACTIONS (5)
  - Pancreatic carcinoma [Unknown]
  - Reaction to colouring [Unknown]
  - Urinary tract disorder [Unknown]
  - Unevaluable event [Unknown]
  - Dysuria [Unknown]

NARRATIVE: CASE EVENT DATE: 20230317
